FAERS Safety Report 6078822-3 (Version None)
Quarter: 2009Q1

REPORT INFORMATION
  Report Type: 
  Country: None (occurrence: None)
  Receive Date: 20090216
  Receipt Date: 20080122
  Transmission Date: 20090719
  Serious: No
  Sender: FDA-Public Use
  Company Number: US-BAYER-200810413BCC

PATIENT
  Age: 9 Year
  Sex: Female
  Weight: 27 kg

DRUGS (8)
  1. RID SHAMPOO [Suspect]
     Indication: LICE INFESTATION
     Route: 061
     Dates: start: 20080107
  2. RID SHAMPOO [Suspect]
     Route: 061
     Dates: start: 20080115
  3. RID MOUSSE [Suspect]
     Indication: LICE INFESTATION
     Route: 061
     Dates: start: 20080107
  4. RID MOUSSE [Suspect]
     Route: 061
     Dates: start: 20080115
  5. CONCERTA [Concomitant]
  6. RISPERDAL [Concomitant]
  7. BUPROPION HCL [Concomitant]
  8. GUMMIES MULTIVITAMIN [Concomitant]

REACTIONS (2)
  - LICE INFESTATION [None]
  - PRURITUS [None]
